FAERS Safety Report 17762072 (Version 2)
Quarter: 2020Q2

REPORT INFORMATION
  Report Type: Report from Study
  Country: US (occurrence: US)
  Receive Date: 20200508
  Receipt Date: 20200529
  Transmission Date: 20200714
  Serious: No
  Sender: FDA-Public Use
  Company Number: US-BIOVITRUM-2020US1956

PATIENT
  Age: 8 Year
  Sex: Male

DRUGS (5)
  1. ILARIS [Concomitant]
     Active Substance: CANAKINUMAB
  2. KINERET [Suspect]
     Active Substance: ANAKINRA
     Indication: PYREXIA
     Route: 058
     Dates: start: 20200411
  3. KINERET [Suspect]
     Active Substance: ANAKINRA
     Route: 058
     Dates: start: 20200418
  4. COLCHICINE. [Concomitant]
     Active Substance: COLCHICINE
  5. KINERET [Suspect]
     Active Substance: ANAKINRA
     Route: 058
     Dates: start: 20200411

REACTIONS (8)
  - Dizziness [Recovered/Resolved]
  - Condition aggravated [Unknown]
  - Rash macular [Unknown]
  - Abdominal pain upper [Unknown]
  - Injection site rash [Unknown]
  - Gastrooesophageal reflux disease [Unknown]
  - Pyrexia [Not Recovered/Not Resolved]
  - Off label use [Not Recovered/Not Resolved]

NARRATIVE: CASE EVENT DATE: 20200411
